FAERS Safety Report 9306115 (Version 3)
Quarter: 2013Q3

REPORT INFORMATION
  Report Type: Spontaneous
  Country: JP (occurrence: JP)
  Receive Date: 20130523
  Receipt Date: 20130703
  Transmission Date: 20140515
  Serious: Yes (Other)
  Sender: FDA-Public Use
  Company Number: JP-ASTRAZENECA-2013SE21589

PATIENT
  Age: 25575 Day
  Sex: Female
  Weight: 66 kg

DRUGS (3)
  1. ARIMIDEX [Suspect]
     Indication: BREAST CANCER
     Route: 048
     Dates: start: 20060219, end: 20120301
  2. FASLODEX [Suspect]
     Indication: BREAST CANCER
     Dosage: 500MG EVERY TWO WEEKS FOLLOWED BY 500MG EVERY FOUR WEEKS
     Route: 030
     Dates: start: 20120622, end: 20130104
  3. ZOMETA [Concomitant]
     Indication: METASTASES TO BONE
     Route: 042
     Dates: start: 20120302

REACTIONS (3)
  - Renal disorder [Not Recovered/Not Resolved]
  - Pain in extremity [Recovering/Resolving]
  - Injection site pain [Recovering/Resolving]
